FAERS Safety Report 13623666 (Version 1)
Quarter: 2017Q2

REPORT INFORMATION
  Report Type: Spontaneous
  Country: CN (occurrence: CN)
  Receive Date: 20170607
  Receipt Date: 20170607
  Transmission Date: 20170830
  Serious: Yes (Death, Other)
  Sender: FDA-Public Use
  Company Number: CN-CELGENEUS-CHN-20170508769

PATIENT

DRUGS (2)
  1. CISPLATIN. [Suspect]
     Active Substance: CISPLATIN
     Indication: NASOPHARYNGEAL CANCER
     Route: 041
  2. ABRAXANE [Suspect]
     Active Substance: PACLITAXEL
     Indication: NASOPHARYNGEAL CANCER
     Route: 041

REACTIONS (18)
  - Disease progression [Unknown]
  - Musculoskeletal pain [Unknown]
  - Hepatotoxicity [Unknown]
  - Leukopenia [Unknown]
  - Vomiting [Unknown]
  - Diarrhoea [Unknown]
  - Vision blurred [Unknown]
  - Infection [Fatal]
  - Mucosal inflammation [Unknown]
  - Alopecia [Unknown]
  - Hypersensitivity [Unknown]
  - Ototoxicity [Unknown]
  - Nausea [Unknown]
  - Anaemia [Unknown]
  - Thrombocytopenia [Unknown]
  - Nephropathy toxic [Unknown]
  - Neutropenia [Unknown]
  - Weight decreased [Unknown]
